FAERS Safety Report 6026440-5 (Version None)
Quarter: 2009Q1

REPORT INFORMATION
  Report Type: 
  Country: None (occurrence: None)
  Receive Date: 20090102
  Receipt Date: 20081226
  Transmission Date: 20090719
  Serious: Yes (Other)
  Sender: FDA-Public Use
  Company Number: US-BAYER-200814395BCC

PATIENT
  Age: 55 Year
  Sex: Female
  Weight: 64 kg

DRUGS (6)
  1. ALEVE (CAPLET) [Suspect]
     Indication: DRUG USE FOR UNKNOWN INDICATION
     Dosage: UNIT DOSE: 220 MG
     Dates: start: 20081105
  2. VITAMIN E [Concomitant]
  3. ASCORBIC ACID [Concomitant]
  4. SYNTHROID [Concomitant]
  5. ADVAIR DISKUS 250/50 [Concomitant]
  6. MULTI-VITAMIN [Concomitant]

REACTIONS (5)
  - DYSPNOEA [None]
  - HYPERSENSITIVITY [None]
  - MUSCLE SPASMS [None]
  - URTICARIA [None]
  - VOMITING [None]
